FAERS Safety Report 6010884-1 (Version None)
Quarter: 2008Q4

REPORT INFORMATION
  Report Type: 
  Country: None (occurrence: None)
  Receive Date: 20081218
  Receipt Date: 20081205
  Transmission Date: 20090506
  Serious: Yes (Hospitalization)
  Sender: FDA-Public Use
  Company Number: PHHO2007AU17685

PATIENT
  Sex: Male

DRUGS (3)
  1. ERL 080A ERL+TAB [Suspect]
     Indication: RENAL TRANSPLANT
     Dosage: 720 MG, BID
     Route: 048
     Dates: start: 20071003
  2. ERL 080A ERL+TAB [Suspect]
     Dosage: 500 MG, BID
     Route: 048
  3. NEORAL [Suspect]
     Indication: RENAL TRANSPLANT
     Dosage: 450 MG, BID
     Dates: start: 20071003, end: 20071015

REACTIONS (10)
  - ABDOMINAL PAIN [None]
  - ALANINE AMINOTRANSFERASE INCREASED [None]
  - ASPARTATE AMINOTRANSFERASE INCREASED [None]
  - GAMMA-GLUTAMYLTRANSFERASE INCREASED [None]
  - ISCHAEMIC HEPATITIS [None]
  - NAUSEA [None]
  - NEPHROPATHY TOXIC [None]
  - RENAL IMPAIRMENT [None]
  - RENAL TUBULAR NECROSIS [None]
  - VOMITING [None]
